FAERS Safety Report 6905942-0 (Version None)
Quarter: 2010Q3

REPORT INFORMATION
  Report Type: 
  Country: None (occurrence: None)
  Receive Date: 20100803
  Receipt Date: 20100803
  Transmission Date: 20110219
  Serious: Yes (Hospitalization)
  Sender: FDA-Public Use
  Company Number: None

PATIENT
  Age: 74 Year
  Sex: Male
  Weight: 66 kg

DRUGS (2)
  1. CEFTRIAXONE [Suspect]
     Indication: DYSPNOEA
     Dosage: 1 GM ONCE IV
     Route: 042
     Dates: start: 20091209, end: 20091209
  2. IOPROMIDE [Suspect]
     Indication: COMPUTERISED TOMOGRAM
     Dosage: 100 ML ONCE IV
     Route: 042
     Dates: start: 20091209, end: 20091209

REACTIONS (5)
  - ANAPHYLACTIC REACTION [None]
  - ASTHENIA [None]
  - DYSPNOEA [None]
  - HYPOXIA [None]
  - LUNG INFILTRATION [None]
